FAERS Safety Report 5712311-8 (Version None)
Quarter: 2008Q2

REPORT INFORMATION
  Report Type: 
  Country: None (occurrence: None)
  Receive Date: 20080417
  Receipt Date: 20080402
  Transmission Date: 20081010
  Serious: Yes (Hospitalization)
  Sender: FDA-Public Use
  Company Number: 2008S1000124

PATIENT
  Age: 35 Year
  Sex: Male

DRUGS (7)
  1. CUBICIN [Suspect]
     Indication: OSTEOMYELITIS
     Dosage: 4 MG/KG; Q24H; IV
     Route: 042
  2. CLONAZEPAM [Concomitant]
  3. SERTRALINE [Concomitant]
  4. FERROUS SULFATE TAB [Concomitant]
  5. HYDROMORPHONE HCL [Concomitant]
  6. PROCHLORPERAZINE [Concomitant]
  7. ASCORBIC ACID [Concomitant]

REACTIONS (22)
  - BACTERAEMIA [None]
  - BLOOD CHLORIDE INCREASED [None]
  - BLOOD GLUCOSE INCREASED [None]
  - BLOOD LACTIC ACID DECREASED [None]
  - BLOOD SODIUM DECREASED [None]
  - CARBON DIOXIDE DECREASED [None]
  - COUGH [None]
  - DECREASED APPETITE [None]
  - DEHYDRATION [None]
  - DYSPNOEA [None]
  - HAEMATOCRIT DECREASED [None]
  - HAEMOGLOBIN DECREASED [None]
  - HEPATOTOXICITY [None]
  - HYPERTENSION [None]
  - INSOMNIA [None]
  - MEAN CELL HAEMOGLOBIN INCREASED [None]
  - NAUSEA [None]
  - PLATELET COUNT DECREASED [None]
  - RED BLOOD CELL COUNT DECREASED [None]
  - RENAL FAILURE ACUTE [None]
  - STENOTROPHOMONAS INFECTION [None]
  - VOMITING [None]
